FAERS Safety Report 25617312 (Version 1)
Quarter: 2025Q3

REPORT INFORMATION
  Report Type: Spontaneous
  Country: MY (occurrence: MY)
  Receive Date: 20250729
  Receipt Date: 20250729
  Transmission Date: 20251020
  Serious: Yes (Other)
  Sender: MYLAN
  Company Number: MY-MYLANLABS-2025M1063439

PATIENT
  Age: 55 Year
  Sex: Female

DRUGS (1)
  1. DILANTIN [Suspect]
     Active Substance: PHENYTOIN
     Indication: Seizure prophylaxis
     Dosage: 300 MILLIGRAM, QD (DOSE INTERVAL 1 DAY)

REACTIONS (4)
  - Rash pruritic [Recovering/Resolving]
  - Swelling face [Recovering/Resolving]
  - Periorbital swelling [Recovering/Resolving]
  - Palpitations [Recovering/Resolving]
